FAERS Safety Report 6383761-4 (Version None)
Quarter: 2009Q4

REPORT INFORMATION
  Report Type: 
  Country: None (occurrence: None)
  Receive Date: 20091001
  Receipt Date: 20090924
  Transmission Date: 20100525
  Serious: Yes (Other)
  Sender: FDA-Public Use
  Company Number: SE-JNJFOC-20090905179

PATIENT
  Age: 9 Year
  Sex: Male
  Weight: 29 kg

DRUGS (4)
  1. CONCERTA [Suspect]
     Route: 048
     Dates: start: 20090901
  2. CONCERTA [Suspect]
     Indication: DRUG USE FOR UNKNOWN INDICATION
     Dosage: STOPPED AFTER ONE WEEK
     Route: 048
     Dates: start: 20090901
  3. RISPERDAL [Suspect]
     Indication: DRUG USE FOR UNKNOWN INDICATION
     Dosage: STOPPED AFTER 2 DAYS
     Route: 048
     Dates: start: 20090901, end: 20090901
  4. TAVEGYL [Concomitant]
     Route: 065

REACTIONS (3)
  - PRURITUS [None]
  - RASH [None]
  - SWELLING [None]
